FAERS Safety Report 8791456 (Version 2)
Quarter: 2012Q4

REPORT INFORMATION
  Report Type: Spontaneous
  Country: US (occurrence: None)
  Receive Date: 20120911
  Receipt Date: 20120918
  Transmission Date: 20130627
  Serious: Yes (Hospitalization)
  Sender: FDA-Public Use
  Company Number: DSA_58864_2012

PATIENT
  Sex: Female
  Weight: 68.95 kg

DRUGS (2)
  1. XENAZINE 12.5 MG (NOT SPECIFIED) [Suspect]
     Indication: TARDIVE DYSKINESIA
     Dosage: (12.5 mg four times daily or 25 mg four times daily oral)
     Route: 048
     Dates: start: 201107, end: 201208
  2. XENAZINE 12.5 MG (NOT SPECIFIED) [Suspect]
     Indication: TARDIVE DYSKINESIA
     Route: 048
     Dates: start: 201208

REACTIONS (2)
  - Blood pressure decreased [None]
  - Incorrect dose administered [None]
